FAERS Safety Report 15987730 (Version 3)
Quarter: 2019Q1

REPORT INFORMATION
  Report Type: Spontaneous
  Country: DE (occurrence: DE)
  Receive Date: 20190220
  Receipt Date: 20190319
  Transmission Date: 20190418
  Serious: No
  Sender: FDA-Public Use
  Company Number: DE-BAUSCH-BL-2019-005569

PATIENT
  Age: 67 Year
  Sex: Female
  Weight: 62 kg

DRUGS (1)
  1. MOVIPREP [Suspect]
     Active Substance: ASCORBIC ACID\POLYETHYLENE GLYCOL 3350\POTASSIUM CHLORIDE\SODIUM ASCORBATE\SODIUM CHLORIDE\SODIUM SULFATE
     Indication: BOWEL PREPARATION
     Dosage: SINGLE DOSE?2 SACHETS
     Route: 048
     Dates: start: 20190210, end: 20190210

REACTIONS (2)
  - Rash [Recovered/Resolved]
  - Peripheral swelling [Recovered/Resolved]
